FAERS Safety Report 11383253 (Version 3)
Quarter: 2015Q4

REPORT INFORMATION
  Report Type: Spontaneous
  Country: CH (occurrence: CH)
  Receive Date: 20150814
  Receipt Date: 20151005
  Transmission Date: 20160304
  Serious: Yes (Death, Other)
  Sender: FDA-Public Use
  Company Number: US-ASTRAZENECA-2015SE78205

PATIENT
  Age: 16763 Day
  Sex: Female

DRUGS (4)
  1. PALBOCICLIB [Concomitant]
     Active Substance: PALBOCICLIB
     Indication: BREAST CANCER METASTATIC
     Dates: start: 20150818
  2. FASLODEX [Suspect]
     Active Substance: FULVESTRANT
     Route: 030
     Dates: start: 201504
  3. PANTOZOL [Concomitant]
     Active Substance: PANTOPRAZOLE SODIUM
     Route: 048
  4. METAMIZOLE [Concomitant]
     Active Substance: METAMIZOLE

REACTIONS (12)
  - Malignant neoplasm progression [Unknown]
  - Metastases to lung [Unknown]
  - Blood lactate dehydrogenase increased [Unknown]
  - Metastases to liver [Unknown]
  - C-reactive protein increased [Unknown]
  - Metastases to lymph nodes [Unknown]
  - Gamma-glutamyltransferase increased [Unknown]
  - Metastases to bone [Unknown]
  - Haemoglobin decreased [Unknown]
  - Multi-organ failure [Fatal]
  - Metastases to central nervous system [Unknown]
  - Blood calcium decreased [Unknown]

NARRATIVE: CASE EVENT DATE: 20150708
